FAERS Safety Report 8097555-5 (Version None)
Quarter: 2012Q1

REPORT INFORMATION
  Report Type: 
  Country: None (occurrence: None)
  Receive Date: 20120128
  Receipt Date: 20110706
  Transmission Date: 20120608
  Serious: No
  Sender: FDA-Public Use
  Company Number: US-ABBOTT-11P-163-0837169-00

PATIENT
  Sex: Female
  Weight: 54.48 kg

DRUGS (5)
  1. XANAX [Concomitant]
     Indication: ANXIETY
  2. HUMIRA [Suspect]
     Indication: CROHN'S DISEASE
     Dates: start: 20080101
  3. OXYCODONE HCL [Concomitant]
     Indication: PAIN
  4. CYMBALTA [Concomitant]
     Indication: DEPRESSION
  5. ESTROGENIC SUBSTANCE [Concomitant]
     Indication: OESTROGEN REPLACEMENT THERAPY

REACTIONS (1)
  - INJECTION SITE PAIN [None]
